FAERS Safety Report 8562404-5 (Version None)
Quarter: 2012Q3

REPORT INFORMATION
  Report Type: 
  Country: None (occurrence: None)
  Receive Date: 20120802
  Receipt Date: 20120720
  Transmission Date: 20120928
  Serious: No
  Sender: FDA-Public Use
  Company Number: US-ASTRAZENECA-2012SE51322

PATIENT
  Sex: Female

DRUGS (5)
  1. SEROQUEL [Suspect]
     Indication: INSOMNIA
     Route: 048
  2. BENADRYL [Concomitant]
  3. AMBIEN [Concomitant]
  4. TRAZODONE HYDROCHLORIDE [Concomitant]
  5. LITHIUM CARBONATE [Concomitant]

REACTIONS (3)
  - GLOSSODYNIA [None]
  - OFF LABEL USE [None]
  - SWOLLEN TONGUE [None]
